FAERS Safety Report 21330902 (Version 2)
Quarter: 2022Q3

REPORT INFORMATION
  Report Type: Spontaneous
  Country: US (occurrence: US)
  Receive Date: 20220914
  Receipt Date: 20220927
  Transmission Date: 20221027
  Serious: No
  Sender: FDA-Public Use
  Company Number: US-TEVA-2022-US-2071929

PATIENT
  Age: 75 Year
  Sex: Female
  Weight: 51.71 kg

DRUGS (2)
  1. ALBUTEROL SULFATE [Suspect]
     Active Substance: ALBUTEROL SULFATE
     Indication: COVID-19
     Dosage: 2 INHALATIONS EVERY 4 HOURS
     Route: 055
     Dates: start: 20220831, end: 20220903
  2. PAXLOVID [Suspect]
     Active Substance: NIRMATRELVIR\RITONAVIR
     Indication: COVID-19
     Dosage: 300 MG TAKE THREE 100 MG TABLETS IN THE MORNING AND EVENING
     Route: 065

REACTIONS (8)
  - Oral disorder [Unknown]
  - Tongue discomfort [Unknown]
  - Glossitis [Unknown]
  - Pruritus [Unknown]
  - Insomnia [Unknown]
  - Taste disorder [Unknown]
  - Tongue blistering [Unknown]
  - Product quality issue [Unknown]

NARRATIVE: CASE EVENT DATE: 20220901
